FAERS Safety Report 6142972-3 (Version None)
Quarter: 2009Q2

REPORT INFORMATION
  Report Type: 
  Country: None (occurrence: None)
  Receive Date: 20090403
  Receipt Date: 20090325
  Transmission Date: 20091009
  Serious: Yes (Other)
  Sender: FDA-Public Use
  Company Number: US-ROCHE-624174

PATIENT
  Age: 47 Year
  Sex: Male

DRUGS (1)
  1. FUZEON [Suspect]
     Route: 065

REACTIONS (2)
  - AMYLOIDOSIS [None]
  - INJECTION SITE REACTION [None]
